FAERS Safety Report 9723680 (Version 1)
Quarter: 2013Q4

REPORT INFORMATION
  Report Type: Spontaneous
  Country: JP (occurrence: JP)
  Receive Date: 20131202
  Receipt Date: 20131202
  Transmission Date: 20140711
  Serious: Yes (Other)
  Sender: FDA-Public Use
  Company Number: JP-GLAXOSMITHKLINE-B0948830A

PATIENT
  Age: 4 Year
  Sex: Male

DRUGS (1)
  1. ALKERAN [Suspect]
     Indication: STEM CELL TRANSPLANT
     Route: 042

REACTIONS (5)
  - Growth hormone deficiency [Unknown]
  - Empty sella syndrome [Unknown]
  - Primary hypothyroidism [Unknown]
  - Primary hypogonadism [Unknown]
  - Failure to thrive [Unknown]
